FAERS Safety Report 10906756 (Version 2)
Quarter: 2015Q2

REPORT INFORMATION
  Report Type: Spontaneous
  Country: US (occurrence: US)
  Receive Date: 20150312
  Receipt Date: 20150429
  Transmission Date: 20150821
  Serious: Yes (Hospitalization, Other)
  Sender: FDA-Public Use
  Company Number: US-BIOGENIDEC-2015BI026755

PATIENT
  Age: 64 Year
  Sex: Female

DRUGS (9)
  1. TECFIDERA [Suspect]
     Active Substance: DIMETHYL FUMARATE
     Indication: MULTIPLE SCLEROSIS
     Route: 048
     Dates: start: 20140908
  2. MODAFANIL [Concomitant]
  3. PROLIA [Concomitant]
     Active Substance: DENOSUMAB
  4. BACLOFEN. [Concomitant]
     Active Substance: BACLOFEN
  5. RESTASIS [Concomitant]
     Active Substance: CYCLOSPORINE
  6. CALCIUM PLUS VITAMIN D [Concomitant]
     Active Substance: CALCIUM\VITAMIN D
  7. LYRICA [Concomitant]
     Active Substance: PREGABALIN
  8. MAGNESIUM GLUCONATE [Concomitant]
     Active Substance: MAGNESIUM GLUCONATE
  9. ZANAFELX [Concomitant]

REACTIONS (2)
  - Skin cancer [Not Recovered/Not Resolved]
  - Lymphocyte count decreased [Unknown]

NARRATIVE: CASE EVENT DATE: 20150220
